FAERS Safety Report 8005362-4 (Version None)
Quarter: 2011Q4

REPORT INFORMATION
  Report Type: 
  Country: None (occurrence: None)
  Receive Date: 20111223
  Receipt Date: 20111220
  Transmission Date: 20120403
  Serious: Yes (Other)
  Sender: FDA-Public Use
  Company Number: GB-PFIZER INC-2011309592

PATIENT
  Age: 60 Year

DRUGS (7)
  1. MIRTAZAPINE [Suspect]
     Indication: DEPRESSION
     Dosage: UNK
  2. COLCHICINE [Suspect]
     Dosage: 1 MG, DAILY
  3. VALSARTAN [Suspect]
     Dosage: 120 MG, DAILY
  4. CETIRIZINE HCL [Suspect]
     Dosage: 10 MG, 1X/DAY
  5. ALLOPURINOL [Suspect]
     Dosage: 300 MG, DAILY
  6. METFORMIN HCL [Suspect]
     Dosage: 1500 MG, DAILY
  7. DOXAZOSIN MESYLATE [Suspect]
     Dosage: 4 MG, DAILY

REACTIONS (1)
  - PANCREATITIS ACUTE [None]
